FAERS Safety Report 8000255-0 (Version None)
Quarter: 2011Q4

REPORT INFORMATION
  Report Type: 
  Country: None (occurrence: None)
  Receive Date: 20111222
  Receipt Date: 20111214
  Transmission Date: 20120403
  Serious: Yes (Hospitalization)
  Sender: FDA-Public Use
  Company Number: IT-AMGEN-ITASP2011067151

PATIENT
  Age: 75 Year
  Sex: Female

DRUGS (4)
  1. PANTOPRAZOLE SODIUM [Concomitant]
     Dosage: 20 MG
  2. DEFLAN [Concomitant]
     Dosage: 6 MG
  3. ENBREL [Suspect]
     Indication: RHEUMATOID ARTHRITIS
     Dosage: 50 MG, WEEKLY
     Route: 058
     Dates: start: 20100713, end: 20111111
  4. RISEDRONATE SODIUM [Concomitant]
     Dosage: 35 MG

REACTIONS (1)
  - MYOCARDIAL INFARCTION [None]
